FAERS Safety Report 13650382 (Version 1)
Quarter: 2017Q2

REPORT INFORMATION
  Report Type: Spontaneous
  Country: US (occurrence: US)
  Receive Date: 20170614
  Receipt Date: 20170614
  Transmission Date: 20170830
  Serious: Yes (Hospitalization)
  Sender: FDA-Public Use
  Company Number: None

PATIENT
  Age: 15 Year
  Sex: Female
  Weight: 86.9 kg

DRUGS (4)
  1. MERCAPTOPURINE. [Suspect]
     Active Substance: MERCAPTOPURINE
     Dates: end: 20170606
  2. METHOTREXATE. [Suspect]
     Active Substance: METHOTREXATE
     Dates: end: 20170606
  3. VINCRISTINE SULFATE. [Suspect]
     Active Substance: VINCRISTINE SULFATE
     Dates: end: 20170523
  4. PREDNISONE. [Suspect]
     Active Substance: PREDNISONE
     Dates: end: 20170527

REACTIONS (9)
  - Rectal fissure [None]
  - Erythema [None]
  - Blood bilirubin increased [None]
  - Gastrointestinal wall thickening [None]
  - Ocular icterus [None]
  - Cholelithiasis [None]
  - Abdominal pain [None]
  - Haematochezia [None]
  - Colitis [None]

NARRATIVE: CASE EVENT DATE: 20170610
